FAERS Safety Report 24080873 (Version 1)
Quarter: 2024Q3

REPORT INFORMATION
  Report Type: Spontaneous
  Country: CA (occurrence: CA)
  Receive Date: 20240711
  Receipt Date: 20240711
  Transmission Date: 20241016
  Serious: Yes (Other)
  Sender: PFIZER
  Company Number: CA-PFIZER INC-202400209810

PATIENT
  Age: 77 Year
  Sex: Female
  Weight: 90.703 kg

DRUGS (2)
  1. METHOTREXATE SODIUM [Suspect]
     Active Substance: METHOTREXATE SODIUM
     Indication: Rheumatoid arthritis
     Dosage: 1 DF, WEEKLY
     Route: 065
     Dates: start: 2019
  2. PNEUMOVAX 23 [Concomitant]
     Active Substance: PNEUMOCOCCAL VACCINE, POLYVALENT 23
     Dosage: UNK
     Dates: start: 20240708

REACTIONS (1)
  - Shoulder arthroplasty [Unknown]

NARRATIVE: CASE EVENT DATE: 20240503
